FAERS Safety Report 21890632 (Version 3)
Quarter: 2023Q1

REPORT INFORMATION
  Report Type: Report from Study
  Country: US (occurrence: US)
  Receive Date: 20230120
  Receipt Date: 20230203
  Transmission Date: 20230418
  Serious: Yes (Hospitalization, Other)
  Sender: FDA-Public Use
  Company Number: US-GILEAD-2023-0613375

PATIENT
  Sex: Male

DRUGS (7)
  1. AZTREONAM LYSINE [Suspect]
     Active Substance: AZTREONAM LYSINE
     Indication: Cystic fibrosis
     Dosage: 75 MG, TID (INHALE 1 VIAL (75 MG) VIA ALTERA NEBULIZER 3X DAILY FOR 28 DAYS ON AND 28 DAYS OFF )
     Route: 055
     Dates: start: 20210519
  2. PULMOZYME [Concomitant]
     Active Substance: DORNASE ALFA
     Indication: Cystic fibrosis
     Dosage: 1 DOSAGE FORM, QD
  3. PULMOZYME [Concomitant]
     Active Substance: DORNASE ALFA
     Dosage: INHALE THE CONTENTS OF 1 AMPULE (2.5 ML) BY NEBULIZER ONCE A DAY
  4. TOBRAMYCIN SULFATE [Concomitant]
     Active Substance: TOBRAMYCIN SULFATE
     Dosage: TOBRAMYCIN SULF INHL 300MG/5ML
  5. ALBUTEROL SULFATE [Concomitant]
     Active Substance: ALBUTEROL SULFATE
     Dosage: ALBUTEROL SULFATE 1.25MG/3ML VIAL-NEB
  6. ZENPEP [Concomitant]
     Active Substance: PANCRELIPASE AMYLASE\PANCRELIPASE LIPASE\PANCRELIPASE PROTEASE
     Dosage: ZENPEP 10-32-42K CAPSULE DR
  7. TOBRAMYCIN [Concomitant]
     Active Substance: TOBRAMYCIN
     Dosage: INHALE 1 AMPULE (5 ML) VIA NEBULIZER IN THE AM AND 1 AMPULE (5 ML) VIA NEBULIZER IN THE PM EVERY 28

REACTIONS (2)
  - Infection [Unknown]
  - Cystic fibrosis [Unknown]
